FAERS Safety Report 7269405-8 (Version None)
Quarter: 2011Q1

REPORT INFORMATION
  Report Type: 
  Country: None (occurrence: None)
  Receive Date: 20110202
  Receipt Date: 20110124
  Transmission Date: 20110831
  Serious: Yes (Other)
  Sender: FDA-Public Use
  Company Number: US-NOVOPROD-322439

PATIENT
  Sex: Male

DRUGS (1)
  1. VICTOZA [Suspect]
     Indication: TYPE 2 DIABETES MELLITUS
     Dosage: UNKNOWN
     Route: 058

REACTIONS (4)
  - LISTLESS [None]
  - PANCREATIC CARCINOMA [None]
  - LIVER DISORDER [None]
  - WEIGHT DECREASED [None]
